FAERS Safety Report 25813413 (Version 2)
Quarter: 2025Q3

REPORT INFORMATION
  Report Type: Report from Study
  Country: CN (occurrence: CN)
  Receive Date: 20250917
  Receipt Date: 20250920
  Transmission Date: 20251021
  Serious: Yes (Other)
  Sender: JOHNSON AND JOHNSON
  Company Number: CN-JNJFOC-20250913981

PATIENT

DRUGS (1)
  1. INFLIXIMAB [Suspect]
     Active Substance: INFLIXIMAB
     Indication: Colitis ulcerative
     Route: 041

REACTIONS (10)
  - Sepsis [Recovering/Resolving]
  - Gastroenteritis salmonella [Recovering/Resolving]
  - Infusion related reaction [Unknown]
  - Tonsillitis bacterial [Recovering/Resolving]
  - Herpes zoster [Recovering/Resolving]
  - Parotitis [Recovering/Resolving]
  - Drug specific antibody present [Unknown]
  - Drug ineffective [Unknown]
  - Therapeutic product effect decreased [Unknown]
  - Drug level decreased [Unknown]
